FAERS Safety Report 20994614 (Version 4)
Quarter: 2022Q3

REPORT INFORMATION
  Report Type: Spontaneous
  Country: US (occurrence: US)
  Receive Date: 20220622
  Receipt Date: 20220729
  Transmission Date: 20221027
  Serious: Yes (Hospitalization, Other)
  Sender: FDA-Public Use
  Company Number: US-ELI_LILLY_AND_COMPANY-US202206005418

PATIENT
  Sex: Female

DRUGS (3)
  1. FORTEO [Suspect]
     Active Substance: TERIPARATIDE
     Indication: Osteoporosis
     Dosage: 20 UG, UNKNOWN
     Route: 058
     Dates: start: 2021
  2. FORTEO [Suspect]
     Active Substance: TERIPARATIDE
     Indication: Pathological fracture
     Dosage: UNK UNK, UNKNOWN
     Route: 065
  3. ELIQUIS [Concomitant]
     Active Substance: APIXABAN
     Indication: Product used for unknown indication
     Dosage: UNK UNK, UNKNOWN

REACTIONS (7)
  - Pneumonia viral [Recovered/Resolved]
  - Stress fracture [Unknown]
  - Crohn^s disease [Unknown]
  - COVID-19 [Unknown]
  - Illness [Unknown]
  - Ankylosing spondylitis [Unknown]
  - Stress [Unknown]

NARRATIVE: CASE EVENT DATE: 20210101
